FAERS Safety Report 9485709 (Version 1)
Quarter: 2013Q3

REPORT INFORMATION
  Report Type: Spontaneous
  Country: GB (occurrence: None)
  Receive Date: 20130822
  Receipt Date: 20130822
  Transmission Date: 20140515
  Serious: Yes (Disabling)
  Sender: FDA-Public Use
  Company Number: AUR-APL-2013-06735

PATIENT
  Age: 75 Year
  Sex: Male
  Weight: 103 kg

DRUGS (6)
  1. SIMVASTATIN [Suspect]
     Indication: TRANSIENT ISCHAEMIC ATTACK
     Route: 048
     Dates: start: 20060323, end: 20130610
  2. FUROSEMIDE (FUROSEMIDE) [Concomitant]
  3. HYDRALAZINE (HYDRALAZINE) [Concomitant]
  4. INDAPAMIDE (INDAPAMIDE) [Concomitant]
  5. LOSARTAN (LOSARTAN) [Concomitant]
  6. WARFARIN (WARFARIN) [Concomitant]

REACTIONS (1)
  - Dyspnoea [None]
